FAERS Safety Report 5845189-2 (Version None)
Quarter: 2008Q3

REPORT INFORMATION
  Report Type: 
  Country: None (occurrence: None)
  Receive Date: 20080812
  Receipt Date: 20080728
  Transmission Date: 20090109
  Serious: No
  Sender: FDA-Public Use
  Company Number: SPI200800195

PATIENT
  Age: 52 Year
  Sex: Female
  Weight: 50.8 kg

DRUGS (2)
  1. AMITIZA [Suspect]
     Indication: CONSTIPATION
     Dosage: 24 MCG,  ORAL
     Route: 048
     Dates: start: 20080201, end: 20080101
  2. AMITIZA [Suspect]
     Indication: CONSTIPATION
     Dosage: 24 MCG,  ORAL
     Route: 048
     Dates: start: 20080303, end: 20080303

REACTIONS (4)
  - DYSPNOEA [None]
  - HYPERSENSITIVITY [None]
  - NASOPHARYNGITIS [None]
  - VIRAL INFECTION [None]
